FAERS Safety Report 15704942 (Version 3)
Quarter: 2019Q3

REPORT INFORMATION
  Report Type: Spontaneous
  Country: US (occurrence: US)
  Receive Date: 20181210
  Receipt Date: 20190906
  Transmission Date: 20191004
  Serious: Yes (Other)
  Sender: FDA-Public Use
  Company Number: US-SA-2018SA332739

PATIENT
  Age: 54 Year
  Sex: Female
  Weight: 87.08 kg

DRUGS (12)
  1. LIPITOR [Concomitant]
     Active Substance: ATORVASTATIN CALCIUM
     Dosage: UNK
     Dates: start: 19950101
  2. ASPIRIN [ACETYLSALICYLIC ACID] [Concomitant]
     Active Substance: ASPIRIN
     Dosage: 81 MG, QD
  3. TAXOTERE [Suspect]
     Active Substance: DOCETAXEL
     Indication: BREAST CANCER FEMALE
     Dosage: UNK UNK, Q3W
     Route: 042
     Dates: start: 200206, end: 200206
  4. DITROPAN [Concomitant]
     Active Substance: OXYBUTYNIN CHLORIDE
     Dosage: UNK UNK, UNK
     Dates: start: 19950101, end: 20100101
  5. NEOSAR [Concomitant]
     Active Substance: CYCLOPHOSPHAMIDE
     Indication: BREAST CANCER FEMALE
  6. ZOLOFT [Concomitant]
     Active Substance: SERTRALINE HYDROCHLORIDE
     Dosage: UNK
     Dates: start: 19950101
  7. PRINIVIL [Concomitant]
     Active Substance: LISINOPRIL
     Dosage: 20 MG, QD
  8. NASACORT [Concomitant]
     Active Substance: TRIAMCINOLONE ACETONIDE
  9. COMPAZINE [Concomitant]
     Active Substance: PROCHLORPERAZINE MALEATE
  10. TAXOTERE [Suspect]
     Active Substance: DOCETAXEL
     Dosage: UNK UNK, Q3W
     Route: 042
     Dates: start: 200207, end: 200207
  11. ZESTRIL [Concomitant]
     Active Substance: LISINOPRIL
     Dosage: UNK, UNK
  12. ADRIAMYCIN [Concomitant]
     Active Substance: DOXORUBICIN HYDROCHLORIDE
     Indication: BREAST CANCER FEMALE

REACTIONS (2)
  - Psychological trauma [Unknown]
  - Alopecia [Recovering/Resolving]

NARRATIVE: CASE EVENT DATE: 200207
